FAERS Safety Report 9293267 (Version 1)
Quarter: 2013Q2

REPORT INFORMATION
  Report Type: Spontaneous
  Country: JP (occurrence: JP)
  Receive Date: 20130516
  Receipt Date: 20130516
  Transmission Date: 20140414
  Serious: Yes (Hospitalization)
  Sender: FDA-Public Use
  Company Number: JP-BAXTER-2012BAX017698

PATIENT
  Age: 26 Year
  Sex: Female

DRUGS (1)
  1. GAMMAGARD FOR INJECTION 2.5G [Suspect]
     Indication: HYPOGAMMAGLOBULINAEMIA
     Route: 065
     Dates: start: 1998

REACTIONS (1)
  - Cerebral infarction [Recovering/Resolving]
